FAERS Safety Report 8259573-3 (Version None)
Quarter: 2012Q2

REPORT INFORMATION
  Report Type: 
  Country: None (occurrence: None)
  Receive Date: 20120404
  Receipt Date: 20120330
  Transmission Date: 20120825
  Serious: Yes (Hospitalization)
  Sender: FDA-Public Use
  Company Number: PHHY2012CH028375

PATIENT
  Sex: Female

DRUGS (1)
  1. CERTICAN [Suspect]
     Dosage: UNK UKN, UNK

REACTIONS (3)
  - LUNG DISORDER [None]
  - PYREXIA [None]
  - DYSPNOEA [None]
